FAERS Safety Report 10242372 (Version 1)
Quarter: 2014Q2

REPORT INFORMATION
  Report Type: Spontaneous
  Country: GB (occurrence: GB)
  Receive Date: 20140617
  Receipt Date: 20140617
  Transmission Date: 20141212
  Serious: Yes (Life-Threatening)
  Sender: FDA-Public Use
  Company Number: GB-BAXTER-2014BAX029712

PATIENT
  Age: 12 Year
  Sex: Male
  Weight: 24 kg

DRUGS (6)
  1. SEVOFLURANE BAXTER, 100% INHALATION VAPOUR, LIQUID [Suspect]
     Indication: GENERAL ANAESTHESIA
     Route: 065
     Dates: start: 20130924, end: 20130924
  2. CISATRACURIUM [Suspect]
     Indication: GENERAL ANAESTHESIA
     Route: 042
     Dates: start: 20130924, end: 20130924
  3. FENTANYL [Suspect]
     Indication: GENERAL ANAESTHESIA
     Route: 042
     Dates: start: 20130924, end: 20130924
  4. NITROUS OXIDE [Suspect]
     Indication: GENERAL ANAESTHESIA
     Route: 065
     Dates: start: 20130924, end: 20130924
  5. BRUFEN [Concomitant]
     Indication: ANAESTHETIC PREMEDICATION
     Route: 065
     Dates: start: 20130924
  6. PARACETAMOL [Concomitant]
     Indication: ANAESTHETIC PREMEDICATION
     Route: 065
     Dates: start: 20130924

REACTIONS (1)
  - Anaphylactic reaction [Recovered/Resolved]
